FAERS Safety Report 11645196 (Version 2)
Quarter: 2015Q4

REPORT INFORMATION
  Report Type: Spontaneous
  Country: TW (occurrence: TW)
  Receive Date: 20151020
  Receipt Date: 20151026
  Transmission Date: 20160304
  Serious: Yes (Hospitalization, Other)
  Sender: FDA-Public Use
  Company Number: TW-JNJFOC-20151007934

PATIENT
  Age: 31 Year
  Sex: Female
  Weight: 46 kg

DRUGS (8)
  1. FOLIC ACID. [Concomitant]
     Active Substance: FOLIC ACID
     Route: 065
  2. HYDROXYCHLOROQUINE SULFATE. [Concomitant]
     Active Substance: HYDROXYCHLOROQUINE SULFATE
     Route: 065
  3. METHOTREXATE [Concomitant]
     Active Substance: METHOTREXATE
     Route: 065
  4. ETORICOXIB [Concomitant]
     Active Substance: ETORICOXIB
     Route: 065
  5. SIMPONI [Suspect]
     Active Substance: GOLIMUMAB
     Indication: RHEUMATOID ARTHRITIS
     Route: 058
     Dates: start: 20140711, end: 20150909
  6. PREDNISOLONE. [Concomitant]
     Active Substance: PREDNISOLONE
     Route: 065
  7. CLOBETASONE BUTYRATE [Concomitant]
     Active Substance: CLOBETASONE BUTYRATE
     Route: 065
  8. FLOMOXEF [Concomitant]
     Active Substance: FLOMOXEF
     Indication: ANTIBIOTIC THERAPY
     Route: 065
     Dates: start: 20141007

REACTIONS (5)
  - Ovarian cyst [Unknown]
  - Endometriosis [Unknown]
  - Peritonitis [Unknown]
  - Hydronephrosis [Recovering/Resolving]
  - Infection [Unknown]

NARRATIVE: CASE EVENT DATE: 20151007
